FAERS Safety Report 23523681 (Version 3)
Quarter: 2025Q2

REPORT INFORMATION
  Report Type: Spontaneous
  Country: US (occurrence: US)
  Receive Date: 20240214
  Receipt Date: 20250407
  Transmission Date: 20250717
  Serious: Yes (Death, Hospitalization, Other)
  Sender: EISAI
  Company Number: US-Eisai-EC-2024-158816

PATIENT
  Age: 84 Year
  Sex: Male

DRUGS (5)
  1. LECANEMAB [Suspect]
     Active Substance: LECANEMAB
     Indication: Dementia Alzheimer^s type
  2. LECANEMAB [Suspect]
     Active Substance: LECANEMAB
     Dates: start: 20231205, end: 20231205
  3. SIMVASTATIN [Concomitant]
     Active Substance: SIMVASTATIN
  4. FENOFIBRATE [Concomitant]
     Active Substance: FENOFIBRATE
  5. FISH OIL [Concomitant]
     Active Substance: FISH OIL

REACTIONS (8)
  - Death [Fatal]
  - Amyloid related imaging abnormality-oedema/effusion [Unknown]
  - Status epilepticus [Not Recovered/Not Resolved]
  - Parietal lobe stroke [Unknown]
  - Pulmonary embolism [Unknown]
  - Deep vein thrombosis [Unknown]
  - Superficial siderosis of central nervous system [Unknown]
  - Amyloid related imaging abnormality-microhaemorrhages and haemosiderin deposits [Unknown]

NARRATIVE: CASE EVENT DATE: 20231219
